FAERS Safety Report 9722030 (Version 2)
Quarter: 2014Q1

REPORT INFORMATION
  Report Type: Report from Study
  Country: JP (occurrence: JP)
  Receive Date: 20131202
  Receipt Date: 20140317
  Transmission Date: 20141002
  Serious: Yes (Life-Threatening, Hospitalization)
  Sender: FDA-Public Use
  Company Number: JP-ACTELION-A-CH2013-91973

PATIENT
  Age: 10 Year
  Sex: Female
  Weight: 20.7 kg

DRUGS (11)
  1. TRACLEER [Suspect]
     Indication: PULMONARY ARTERIAL HYPERTENSION
     Dosage: 5 MG, BID
     Route: 048
     Dates: start: 20080313, end: 20080317
  2. TRACLEER [Suspect]
     Dosage: 10 MG, BID
     Route: 048
     Dates: start: 20080318, end: 20080507
  3. TRACLEER [Suspect]
     Dosage: 12.5 MG, BID
     Route: 048
     Dates: start: 20080508, end: 20080617
  4. TRACLEER [Suspect]
     Dosage: 17.5 MG, BID
     Route: 048
     Dates: start: 20080618, end: 20080730
  5. TRACLEER [Suspect]
     Dosage: 20 MG, BID
     Route: 048
     Dates: start: 20080731
  6. FUROSEMIDE [Concomitant]
  7. SPIRONOLACTONE [Concomitant]
  8. CAPTOPRIL [Concomitant]
  9. DENOPAMINE [Concomitant]
  10. DILTIAZEM HCL [Concomitant]
  11. OXYGEN [Concomitant]

REACTIONS (7)
  - Pulmonary arterial hypertension [Recovering/Resolving]
  - Condition aggravated [Recovering/Resolving]
  - Hepatic function abnormal [Recovered/Resolved]
  - Aspartate aminotransferase increased [Recovered/Resolved]
  - Alanine aminotransferase increased [Recovered/Resolved]
  - Blood bilirubin increased [Recovered/Resolved]
  - Urinary tract infection [Recovered/Resolved]
